FAERS Safety Report 9968733 (Version 1)
Quarter: 2014Q1

REPORT INFORMATION
  Report Type: Report from Study
  Country: US (occurrence: US)
  Receive Date: 20140306
  Receipt Date: 20140306
  Transmission Date: 20141002
  Serious: No
  Sender: FDA-Public Use
  Company Number: US-ABBVIE-13P-163-1142194-00

PATIENT
  Age: 39 Year
  Sex: Female

DRUGS (4)
  1. HUMIRA [Suspect]
     Indication: CROHN^S DISEASE
     Dates: start: 20130816, end: 20130816
  2. HUMIRA [Suspect]
  3. LEXAPRO [Concomitant]
     Indication: DEPRESSION
  4. ALPRAZOLAM [Concomitant]
     Indication: ANXIETY

REACTIONS (3)
  - Flatulence [Not Recovered/Not Resolved]
  - Infection [Not Recovered/Not Resolved]
  - Alopecia [Not Recovered/Not Resolved]
